FAERS Safety Report 5494602-1 (Version None)
Quarter: 2007Q4

REPORT INFORMATION
  Report Type: 
  Country: None (occurrence: None)
  Receive Date: 20071024
  Receipt Date: 20071018
  Transmission Date: 20080405
  Serious: Yes (Death, Hospitalization, Other)
  Sender: FDA-Public Use
  Company Number: PHBS2006JP14106

PATIENT
  Age: 66 Year
  Sex: Female

DRUGS (8)
  1. CYCLOSPORINE [Suspect]
     Indication: ANTI-NEUTROPHIL CYTOPLASMIC ANTIBODY POSITIVE VASCULITIS
     Dosage: UNK, UNK
     Route: 048
  2. CYCLOSPORINE [Suspect]
     Dosage: 75 MG/D
     Route: 048
     Dates: start: 20050601
  3. PREDNISOLONE [Suspect]
     Indication: ANTI-NEUTROPHIL CYTOPLASMIC ANTIBODY POSITIVE VASCULITIS
     Dosage: 22.5 MG/D
     Route: 048
     Dates: start: 20050601
  4. PREDNISOLONE [Suspect]
     Dosage: 60 MG/D
     Route: 048
     Dates: start: 20041201
  5. PREDNISOLONE [Suspect]
     Dosage: 25 MG/D
     Route: 048
  6. ENDOXAN [Concomitant]
     Indication: ANTI-NEUTROPHIL CYTOPLASMIC ANTIBODY POSITIVE VASCULITIS
     Dates: start: 20041201
  7. WARFARIN SODIUM [Concomitant]
     Indication: ANTI-NEUTROPHIL CYTOPLASMIC ANTIBODY POSITIVE VASCULITIS
     Route: 048
     Dates: start: 20041201
  8. DENOSINE [Concomitant]
     Indication: CYTOMEGALOVIRUS CHORIORETINITIS
     Dosage: 500 MG - 250 MG/DAY
     Route: 065
     Dates: start: 20050708, end: 20050727

REACTIONS (22)
  - ANAEMIA [None]
  - BONE MARROW FAILURE [None]
  - BRAIN ABSCESS [None]
  - CATARACT [None]
  - CD4 LYMPHOCYTES DECREASED [None]
  - CD4/CD8 RATIO DECREASED [None]
  - CD8 LYMPHOCYTES DECREASED [None]
  - CONJUNCTIVAL OEDEMA [None]
  - CYTOMEGALOVIRUS ANTIBODY POSITIVE [None]
  - CYTOMEGALOVIRUS CHORIORETINITIS [None]
  - EYE HAEMORRHAGE [None]
  - HAEMATOCRIT DECREASED [None]
  - HAEMOGLOBIN DECREASED [None]
  - HERPES ZOSTER [None]
  - IMMUNODEFICIENCY [None]
  - PNEUMONIA ESCHERICHIA [None]
  - RED BLOOD CELL COUNT DECREASED [None]
  - RETINAL DEGENERATION [None]
  - RETINAL EXUDATES [None]
  - SENSATION OF FOREIGN BODY [None]
  - VIRAL DNA TEST POSITIVE [None]
  - VISUAL ACUITY REDUCED [None]
